FAERS Safety Report 25866116 (Version 1)
Quarter: 2025Q3

REPORT INFORMATION
  Report Type: Spontaneous
  Country: US (occurrence: US)
  Receive Date: 20250930
  Receipt Date: 20250930
  Transmission Date: 20251020
  Serious: Yes (Other)
  Sender: INCYTE
  Company Number: US-EVENT-004416

PATIENT

DRUGS (1)
  1. NIKTIMVO [Suspect]
     Active Substance: AXATILIMAB-CSFR
     Indication: Graft versus host disease in lung
     Route: 065

REACTIONS (6)
  - Cataract [Unknown]
  - Vision blurred [Unknown]
  - Myopia [Unknown]
  - Hypermetropia [Unknown]
  - Glare [Unknown]
  - Off label use [Unknown]
